FAERS Safety Report 8349301-5 (Version None)
Quarter: 2012Q2

REPORT INFORMATION
  Report Type: 
  Country: None (occurrence: None)
  Receive Date: 20120508
  Receipt Date: 20120425
  Transmission Date: 20120825
  Serious: Yes (Life-Threatening)
  Sender: FDA-Public Use
  Company Number: TPA2012A02458

PATIENT
  Age: 42 Year
  Sex: Male

DRUGS (8)
  1. FEBURIC (FEBOXOSTAT) [Suspect]
     Indication: HYPERURICAEMIA
     Dosage: 10 MG (10 MG, 1 IN 2 DAY) PER ORAL
     Route: 048
     Dates: start: 20120101, end: 20120419
  2. ATELEC (CILNIDIPINE) [Concomitant]
  3. ONEALFA (ALFACALCIDOL) [Concomitant]
  4. PREDNISOLONE [Concomitant]
  5. LANSOPRAZOLE [Suspect]
     Dosage: 30 MG PER ORAL
     Route: 048
     Dates: start: 20120301, end: 20120419
  6. SULFAMETHOXAZOLE AND TRIMETHOPRIM [Suspect]
     Dosage: 6 DF, PER ORAL
     Route: 048
     Dates: start: 20120301, end: 20120419
  7. BLOPRESS (CANDESARTAN CILEXETIL) [Concomitant]
  8. LIVALO [Concomitant]

REACTIONS (3)
  - HAEMODIALYSIS [None]
  - AGRANULOCYTOSIS [None]
  - SEPTIC SHOCK [None]
